FAERS Safety Report 6779000-2 (Version None)
Quarter: 2010Q2

REPORT INFORMATION
  Report Type: 
  Country: None (occurrence: None)
  Receive Date: 20100618
  Receipt Date: 20100611
  Transmission Date: 20101027
  Serious: Yes (Hospitalization)
  Sender: FDA-Public Use
  Company Number: JP-PFIZER INC-2010073120

PATIENT
  Age: 65 Year
  Sex: Female

DRUGS (3)
  1. NORVASC [Suspect]
     Indication: HYPERTENSION
     Dosage: UNK
     Route: 048
     Dates: start: 20090817, end: 20100609
  2. LASIX [Concomitant]
  3. GLUCONSAN K [Concomitant]

REACTIONS (3)
  - ERYTHEMA [None]
  - LIVER DISORDER [None]
  - OEDEMA [None]
